FAERS Safety Report 21875698 (Version 7)
Quarter: 2023Q1

REPORT INFORMATION
  Report Type: Spontaneous
  Country: DE (occurrence: DE)
  Receive Date: 20230118
  Receipt Date: 20230310
  Transmission Date: 20230418
  Serious: Yes (Other)
  Sender: FDA-Public Use
  Company Number: DE-ROCHE-3262474

PATIENT
  Sex: Female

DRUGS (15)
  1. IMBRUVICA [Suspect]
     Active Substance: IBRUTINIB
     Indication: Diffuse large B-cell lymphoma
     Dosage: FOURTH LINE WITH OBINUTUZUMAB, VENETOCLAX, PREDNISOLONE, LENALOMIDE AND RADIOTHERAPY
     Route: 048
     Dates: start: 20220927, end: 20221117
  2. BENDAMUSTINE HYDROCHLORIDE [Suspect]
     Active Substance: BENDAMUSTINE HYDROCHLORIDE
     Indication: Diffuse large B-cell lymphoma
     Dosage: UNK UNK, CYCLIC, THIRD LINE WITH POLATUZUMAB AND RITUXIMAB, THREE TIMES
     Route: 042
     Dates: start: 20220613, end: 20220920
  3. VENETOCLAX [Suspect]
     Active Substance: VENETOCLAX
     Indication: Diffuse large B-cell lymphoma
     Dosage: UNK UNK, UNKNOWN FREQ., FOURTH LINE WITH OBINUTUZUMAB, IBRUTINIB, PREDNISOLONE, LENALOMIDE AND RADIO
     Route: 048
     Dates: start: 20220927, end: 20221117
  4. CISPLATIN\CYTARABINE\DEXAMETHASONE [Suspect]
     Active Substance: CISPLATIN\CYTARABINE\DEXAMETHASONE
     Indication: Diffuse large B-cell lymphoma
     Dosage: UNK UNK, UNKNOWN FREQ., SECOND LINE WITH RITUXIMAB, TWICE, AS A PART OF DHAP
     Route: 065
     Dates: start: 20220330, end: 20220525
  5. POLATUZUMAB VEDOTIN [Suspect]
     Active Substance: POLATUZUMAB VEDOTIN
     Indication: Diffuse large B-cell lymphoma
     Dosage: UNK UNK, UNKNOWN FREQ., THIRD LINE WITH RITUXIMAB AND BENDAMUSTINE, THREE TIMES
     Route: 065
     Dates: start: 20220613, end: 20220920
  6. RITUXIMAB [Suspect]
     Active Substance: RITUXIMAB
     Indication: Diffuse large B-cell lymphoma
     Dosage: UNK UNK, UNKNOWN FREQ.( FIRST LINE WITH CHOP)
     Route: 065
     Dates: start: 20210701, end: 20211101
  7. RITUXIMAB [Suspect]
     Active Substance: RITUXIMAB
     Indication: Diffuse large B-cell lymphoma
     Dosage: UNK UNK, UNKNOWN FREQ. (SECOND LINE WITH DHAP, TWICE)
     Route: 065
     Dates: start: 20220330, end: 20220525
  8. RITUXIMAB [Suspect]
     Active Substance: RITUXIMAB
     Indication: Diffuse large B-cell lymphoma
     Dosage: UNK UNK, UNKNOWN FREQ., THIRD LINE WITH POLATUZUMAB AND BENDAMUSTINE, THREE TIMES
     Route: 065
     Dates: start: 20220613, end: 20220920
  9. CYCLOPHOSPHAMIDE [Suspect]
     Active Substance: CYCLOPHOSPHAMIDE
     Indication: Diffuse large B-cell lymphoma
     Dosage: FIRST LINE WITH RITUXIMAB, AS A PART OF CHOP
     Route: 065
     Dates: start: 20210701, end: 20211101
  10. CYCLOPHOSPHAMIDE\DOXORUBICIN\PREDNISONE\VINCRISTINE [Suspect]
     Active Substance: CYCLOPHOSPHAMIDE\DOXORUBICIN\PREDNISONE\VINCRISTINE
     Indication: Diffuse large B-cell lymphoma
     Route: 065
     Dates: start: 20210701, end: 20211101
  11. VINCRISTINE SULFATE [Suspect]
     Active Substance: VINCRISTINE SULFATE
     Indication: Product used for unknown indication
     Route: 065
     Dates: start: 20210701, end: 20211101
  12. OBINUTUZUMAB [Suspect]
     Active Substance: OBINUTUZUMAB
     Indication: Diffuse large B-cell lymphoma
     Dosage: UNK UNK, UNKNOWN FREQ., FOURTH LINE WITH VENETOCLAX, IBRUTINIB, PREDNISOLONE, LENALOMIDE AND RADIOTH
     Route: 042
     Dates: start: 20220927, end: 20221117
  13. PREDNISOLONE [Suspect]
     Active Substance: PREDNISOLONE
     Indication: Diffuse large B-cell lymphoma
     Dosage: UNK UNK, UNKNOWN FREQ., FOURTH LINE WITH OBINUTUZUMAB, IBRUTINIB, VENETCLAX, LENALOMIDE AND RADIOTHE
     Route: 065
     Dates: start: 20220927, end: 20221117
  14. LENALIDOMIDE [Suspect]
     Active Substance: LENALIDOMIDE
     Indication: Diffuse large B-cell lymphoma
     Dosage: UNK UNK, UNKNOWN FREQ., FOURTH LINE WITH OBINUTUZUMAB, IBRUTINIB, PREDNISOLONE, VENETOCLAX AND RADIO
     Route: 065
     Dates: start: 20220927, end: 20221117
  15. DOXORUBICIN [Suspect]
     Active Substance: DOXORUBICIN
     Indication: Diffuse large B-cell lymphoma
     Dosage: FIRST LINE WITH RITUXIMAB, AS A PART OF CHOP
     Route: 065
     Dates: start: 20210701, end: 20211101

REACTIONS (2)
  - Lymphoma [Unknown]
  - Off label use [Unknown]

NARRATIVE: CASE EVENT DATE: 20220613
